FAERS Safety Report 25584307 (Version 1)
Quarter: 2025Q3

REPORT INFORMATION
  Report Type: Spontaneous
  Country: EU (occurrence: EU)
  Receive Date: 20250721
  Receipt Date: 20250721
  Transmission Date: 20251020
  Serious: Yes (Death, Hospitalization, Other)
  Sender: EPIC PHARM
  Company Number: EU-EPICPHARMA-FR-2025EPCLIT00820

PATIENT
  Age: 67 Year
  Sex: Male

DRUGS (2)
  1. METFORMIN HYDROCHLORIDE [Suspect]
     Active Substance: METFORMIN HYDROCHLORIDE
     Indication: Product used for unknown indication
     Route: 048
  2. BIKTARVY [Suspect]
     Active Substance: BICTEGRAVIR SODIUM\EMTRICITABINE\TENOFOVIR ALAFENAMIDE FUMARATE
     Indication: Product used for unknown indication
     Route: 048

REACTIONS (24)
  - Multiple organ dysfunction syndrome [Fatal]
  - Hypothermia [Fatal]
  - Hyperkalaemia [Fatal]
  - Hepatic cytolysis [Fatal]
  - Acute kidney injury [Fatal]
  - Acute respiratory failure [Fatal]
  - Hepatic failure [Fatal]
  - Disseminated intravascular coagulation [Fatal]
  - Shock [Fatal]
  - Agitation [Fatal]
  - Patient uncooperative [Fatal]
  - Diarrhoea [Fatal]
  - Bradypnoea [Fatal]
  - Hyperglycaemia [Fatal]
  - Anaemia [Fatal]
  - Hyperlactacidaemia [Fatal]
  - Disturbance in attention [Fatal]
  - Haemodynamic instability [Fatal]
  - Toxicity to various agents [Fatal]
  - Metabolic acidosis [Fatal]
  - Lactic acidosis [Fatal]
  - Condition aggravated [Fatal]
  - Drug interaction [Unknown]
  - Intentional overdose [Unknown]
